FAERS Safety Report 5630858-X (Version None)
Quarter: 2008Q1

REPORT INFORMATION
  Report Type: 
  Country: None (occurrence: None)
  Receive Date: 20080131
  Receipt Date: 20071203
  Transmission Date: 20080703
  Serious: No
  Sender: FDA-Public Use
  Company Number: 163-21880-07101244

PATIENT
  Age: 46 Year
  Sex: Male
  Weight: 105.2345 kg

DRUGS (11)
  1. REVLIMID [Suspect]
     Indication: MULTIPLE MYELOMA
     Dosage: 15 MG, DAILY X 21 DAYS WITH 7 DAYS OFF, ORAL ; 25 MG, 1 IN 1 D, ORAL
     Route: 048
     Dates: start: 20070927, end: 20071101
  2. REVLIMID [Suspect]
     Indication: MULTIPLE MYELOMA
     Dosage: 15 MG, DAILY X 21 DAYS WITH 7 DAYS OFF, ORAL ; 25 MG, 1 IN 1 D, ORAL
     Route: 048
     Dates: start: 20071203
  3. WELLBUTRIN SR (BUPROPION HYDROCHLORIDE) (TABLETS) [Concomitant]
  4. AMERSOL (IBUPROFEN) [Concomitant]
  5. VYTORIN [Concomitant]
  6. SYNTHROID [Concomitant]
  7. DECADRON [Concomitant]
  8. AMARYL [Concomitant]
  9. NEXIUM [Concomitant]
  10. ASPIRIN [Concomitant]
  11. AREDIA [Concomitant]

REACTIONS (6)
  - FLATULENCE [None]
  - HAEMOGLOBIN DECREASED [None]
  - PLATELET COUNT DECREASED [None]
  - THROMBOCYTOPENIA [None]
  - VOMITING [None]
  - WHITE BLOOD CELL COUNT DECREASED [None]
